FAERS Safety Report 8275764-X (Version None)
Quarter: 2012Q2

REPORT INFORMATION
  Report Type: 
  Country: None (occurrence: None)
  Receive Date: 20120410
  Receipt Date: 20120410
  Transmission Date: 20120825
  Serious: No
  Sender: FDA-Public Use
  Company Number: None

PATIENT
  Age: 64 Year
  Sex: Male
  Weight: 95.9 kg

DRUGS (1)
  1. INSULIN [Suspect]
     Indication: DIABETES MELLITUS
     Dates: start: 20110110, end: 20110705

REACTIONS (3)
  - INJECTION SITE REACTION [None]
  - FIBROMA [None]
  - INJECTION SITE PAIN [None]
